FAERS Safety Report 20543133 (Version 1)
Quarter: 2022Q1

REPORT INFORMATION
  Report Type: Spontaneous
  Country: US (occurrence: None)
  Receive Date: 20220302
  Receipt Date: 20220302
  Transmission Date: 20220424
  Serious: No
  Sender: FDA-Public Use
  Company Number: US-ROCHE-2791432

PATIENT
  Sex: Female

DRUGS (2)
  1. NUTROPIN [Suspect]
     Active Substance: SOMATROPIN
     Indication: Product used for unknown indication
     Dosage: ONGOING: UNKNOWN
     Route: 065
  2. NUTROPIN [Suspect]
     Active Substance: SOMATROPIN

REACTIONS (3)
  - Pain [Recovered/Resolved]
  - Haemorrhage [Recovered/Resolved]
  - Contusion [Unknown]
